FAERS Safety Report 10598072 (Version 3)
Quarter: 2014Q4

REPORT INFORMATION
  Report Type: Spontaneous
  Country: US (occurrence: US)
  Receive Date: 20141121
  Receipt Date: 20141125
  Transmission Date: 20150529
  Serious: Yes (Other)
  Sender: FDA-Public Use
  Company Number: US-PFIZER INC-2014072209

PATIENT
  Age: 47 Year
  Sex: Male
  Weight: 111.11 kg

DRUGS (2)
  1. MULTIVITAMINS [Concomitant]
     Active Substance: VITAMINS
  2. VIAGRA [Suspect]
     Active Substance: SILDENAFIL CITRATE
     Dosage: 2 DF, UNK (TWO TABLETS AT A TIME)

REACTIONS (4)
  - Catheter site swelling [Unknown]
  - Erection increased [Unknown]
  - Hypersensitivity [Unknown]
  - Urinary retention [Unknown]
